FAERS Safety Report 5212421-8 (Version None)
Quarter: 2007Q1

REPORT INFORMATION
  Report Type: 
  Country: None (occurrence: None)
  Receive Date: 20070118
  Receipt Date: 20061005
  Transmission Date: 20070707
  Serious: Yes (Hospitalization, Other)
  Sender: FDA-Public Use
  Company Number: US-PFIZER INC-2005130932

PATIENT
  Age: 68 Year
  Sex: Male
  Weight: 90.7 kg

DRUGS (7)
  1. BEXTRA [Suspect]
     Indication: NEUROPATHY
  2. GLIPIZIDE [Concomitant]
  3. ASPIRIN [Concomitant]
  4. LIPITOR [Concomitant]
  5. PREVACID [Concomitant]
  6. NEURONTIN [Concomitant]
  7. TYLENOL [Concomitant]

REACTIONS (1)
  - STEVENS-JOHNSON SYNDROME [None]
